FAERS Safety Report 4359616-3 (Version None)
Quarter: 2004Q2

REPORT INFORMATION
  Report Type: 
  Country: None (occurrence: None)
  Receive Date: 20040514
  Receipt Date: 20040504
  Transmission Date: 20050107
  Serious: Yes (Other)
  Sender: FDA-Public Use
  Company Number: 2004030095

PATIENT
  Age: 3 Year
  Sex: Male
  Weight: 15.4223 kg

DRUGS (2)
  1. DRAMAMINE-D TAB [Suspect]
     Indication: MOTION SICKNESS
     Dosage: 1/4 TAB AS NEEDED; ORAL
     Route: 048
     Dates: end: 20040502
  2. CHILDRENS CHEWABLE VITAMINS (VITAMINS NOS) [Concomitant]

REACTIONS (1)
  - CONVULSION [None]
